FAERS Safety Report 21864114 (Version 1)
Quarter: 2023Q1

REPORT INFORMATION
  Report Type: Other
  Country: IT (occurrence: None)
  Receive Date: 20230116
  Receipt Date: 20230116
  Transmission Date: 20230417
  Serious: Yes (Other)
  Sender: FDA-Public Use
  Company Number: IT-ROCHE-3264507

PATIENT
  Age: 10 Month
  Sex: Male

DRUGS (5)
  1. RITUXIMAB [Suspect]
     Active Substance: RITUXIMAB
     Indication: Epstein-Barr virus infection reactivation
     Route: 042
  2. MELPHALAN [Concomitant]
     Active Substance: MELPHALAN
  3. FLUDARABINE [Concomitant]
     Active Substance: FLUDARABINE PHOSPHATE
  4. THIOTEPA [Concomitant]
     Active Substance: THIOTEPA
  5. LAPINE T-LYMPHOCYTE IMMUNE GLOBULIN [Concomitant]
     Active Substance: LAPINE T-LYMPHOCYTE IMMUNE GLOBULIN

REACTIONS (3)
  - Hypogammaglobulinaemia [Unknown]
  - Bronchiectasis [Unknown]
  - Respiratory tract infection [Unknown]
